FAERS Safety Report 4405240-3 (Version None)
Quarter: 2004Q3

REPORT INFORMATION
  Report Type: 
  Country: None (occurrence: None)
  Receive Date: 20040722
  Receipt Date: 20040722
  Transmission Date: 20050211
  Serious: Yes (Hospitalization)
  Sender: FDA-Public Use
  Company Number: None

PATIENT
  Age: 56 Year
  Weight: 75.5 kg

DRUGS (9)
  1. VANCOMYCIN [Suspect]
  2. ALLOPURINOL [Concomitant]
  3. ASPIRIN [Concomitant]
  4. FELODIPINE [Concomitant]
  5. METOPROLOL TARTRATE [Concomitant]
  6. ACETAMINOPHEN (INPT -UD) [Concomitant]
  7. HUMULIN R [Concomitant]
  8. HUMULIN N [Concomitant]
  9. CALCIUM ACETATE [Concomitant]

REACTIONS (1)
  - PRURITUS [None]
